FAERS Safety Report 12836704 (Version 2)
Quarter: 2017Q1

REPORT INFORMATION
  Report Type: Report from Study
  Country: PL (occurrence: PL)
  Receive Date: 20161011
  Receipt Date: 20170331
  Transmission Date: 20170428
  Serious: Yes (Hospitalization)
  Sender: FDA-Public Use
  Company Number: PL-B.I. PHARMACEUTICALS,INC./RIDGEFIELD-2016-BI-25780BI

PATIENT
  Age: 76 Year
  Sex: Female
  Weight: 79.1 kg

DRUGS (13)
  1. ZOFENIL [Concomitant]
     Active Substance: ZOFENOPRIL
     Indication: HYPERTENSION
     Route: 048
     Dates: start: 20140807
  2. FUROSEMID [Concomitant]
     Active Substance: FUROSEMIDE
     Indication: DIABETIC NEPHROPATHY
     Route: 048
     Dates: start: 20130918
  3. DIAPREL [Concomitant]
     Active Substance: GLICLAZIDE
     Indication: TYPE 2 DIABETES MELLITUS
     Route: 048
     Dates: start: 20150513
  4. VINPOTON [Concomitant]
     Indication: CAROTID ARTERY STENOSIS
     Route: 048
     Dates: start: 20131008
  5. METFORMIN [Concomitant]
     Active Substance: METFORMIN HYDROCHLORIDE
     Indication: TYPE 2 DIABETES MELLITUS
     Route: 048
     Dates: start: 20130918
  6. ACARD [Concomitant]
     Active Substance: ASPIRIN
     Indication: THROMBOSIS PROPHYLAXIS
     Route: 048
     Dates: start: 20131008
  7. VINPOTON [Concomitant]
     Indication: VERTEBROBASILAR INSUFFICIENCY
  8. SPIRONOL [Concomitant]
     Active Substance: SPIRONOLACTONE
     Indication: HYPERTENSION
     Route: 048
     Dates: start: 20130806
  9. ZAHRON [Concomitant]
     Active Substance: ROSUVASTATIN CALCIUM
     Indication: DYSLIPIDAEMIA
     Route: 048
     Dates: start: 20130901
  10. MONONIT [Concomitant]
     Indication: MYOCARDIAL ISCHAEMIA
     Route: 048
     Dates: start: 20160927
  11. BLINDED LINAGLIPTIN [Suspect]
     Active Substance: LINAGLIPTIN
     Indication: TYPE 2 DIABETES MELLITUS
     Route: 048
     Dates: start: 20140320
  12. LOKREN [Concomitant]
     Active Substance: BETAXOLOL HYDROCHLORIDE
     Indication: HYPERTENSION
     Route: 048
     Dates: start: 1988
  13. CAPTOPRIL. [Concomitant]
     Active Substance: CAPTOPRIL
     Indication: HYPERTENSION
     Route: 048
     Dates: start: 20160927

REACTIONS (4)
  - Ankle fracture [Recovered/Resolved]
  - Myelopathy [Recovered/Resolved]
  - Pain in extremity [Recovered/Resolved]
  - Ankle fracture [Recovered/Resolved]

NARRATIVE: CASE EVENT DATE: 20160110
